FAERS Safety Report 5076796-5 (Version None)
Quarter: 2006Q3

REPORT INFORMATION
  Report Type: 
  Country: None (occurrence: None)
  Receive Date: 20060807
  Receipt Date: 20060725
  Transmission Date: 20061208
  Serious: Yes (Hospitalization)
  Sender: FDA-Public Use
  Company Number: L06-TUR-03074-02

PATIENT
  Age: 17 Year
  Sex: Male

DRUGS (1)
  1. CARBAMAZEPINE [Suspect]
     Indication: BRAIN OPERATION

REACTIONS (7)
  - ANAEMIA [None]
  - DRUG HYPERSENSITIVITY [None]
  - EOSINOPHILIA [None]
  - HERPES VIRUS INFECTION [None]
  - HUMAN HERPESVIRUS 6 INFECTION [None]
  - LIVER FUNCTION TEST ABNORMAL [None]
  - LYMPHOCYTOSIS [None]
